FAERS Safety Report 8228189-7 (Version None)
Quarter: 2012Q1

REPORT INFORMATION
  Report Type: 
  Country: None (occurrence: None)
  Receive Date: 20120322
  Receipt Date: 20120312
  Transmission Date: 20120608
  Serious: No
  Sender: FDA-Public Use
  Company Number: US-B.I. PHARMACEUTICALS,INC./RIDGEFIELD-2012-BP-04661BP

PATIENT
  Age: 27 Year
  Sex: Female

DRUGS (4)
  1. ATENOLOL [Concomitant]
     Indication: HYPERTENSION
  2. ZANTAC [Suspect]
     Indication: GASTROOESOPHAGEAL REFLUX DISEASE
     Route: 048
     Dates: start: 20120308
  3. NEXIUM [Concomitant]
     Indication: GASTROINTESTINAL DISORDER
  4. LEXAPRO [Concomitant]

REACTIONS (1)
  - AMPHETAMINES POSITIVE [None]
